FAERS Safety Report 14388041 (Version 1)
Quarter: 2018Q1

REPORT INFORMATION
  Report Type: Spontaneous
  Country: US (occurrence: US)
  Receive Date: 20180115
  Receipt Date: 20180115
  Transmission Date: 20180509
  Serious: Yes (Other)
  Sender: FDA-Public Use
  Company Number: US-SA-2017SA207385

PATIENT
  Age: 57 Year
  Sex: Female
  Weight: 72.57 kg

DRUGS (12)
  1. DOXORUBIN [Concomitant]
     Active Substance: DOXORUBICIN
  2. DOXORUBICIN [Concomitant]
     Active Substance: DOXORUBICIN
  3. TAXOL [Concomitant]
     Active Substance: PACLITAXEL
  4. DOCETAXEL. [Concomitant]
     Active Substance: DOCETAXEL
  5. POT CHLOR [Concomitant]
  6. TAXOTERE [Suspect]
     Active Substance: DOCETAXEL
     Route: 051
     Dates: start: 20111110, end: 20111110
  7. CYCLOPHOSPHAMIDE. [Concomitant]
     Active Substance: CYCLOPHOSPHAMIDE
  8. TAXOTERE [Suspect]
     Active Substance: DOCETAXEL
     Route: 051
     Dates: start: 20111221, end: 20111221
  9. TRAMADOL. [Concomitant]
     Active Substance: TRAMADOL
  10. PACLITAXEL. [Concomitant]
     Active Substance: PACLITAXEL
  11. HYDROCHLOROTHIAZIDE. [Concomitant]
     Active Substance: HYDROCHLOROTHIAZIDE
  12. LASIX [Concomitant]
     Active Substance: FUROSEMIDE

REACTIONS (1)
  - Alopecia [Not Recovered/Not Resolved]

NARRATIVE: CASE EVENT DATE: 201109
